FAERS Safety Report 4400499-0 (Version None)
Quarter: 2004Q3

REPORT INFORMATION
  Report Type: 
  Country: None (occurrence: None)
  Receive Date: 20040719
  Receipt Date: 20040622
  Transmission Date: 20050211
  Serious: Yes (Hospitalization)
  Sender: FDA-Public Use
  Company Number: 200412200EU

PATIENT
  Sex: Female

DRUGS (2)
  1. DOCETAXEL [Suspect]
     Indication: BREAST CANCER METASTATIC
     Route: 042
  2. PACLITAXEL [Concomitant]
     Indication: BREAST CANCER METASTATIC

REACTIONS (4)
  - CHOLANGITIS [None]
  - NAIL TOXICITY [None]
  - PURULENCE [None]
  - SKIN TOXICITY [None]
